FAERS Safety Report 8212368-9 (Version None)
Quarter: 2012Q1

REPORT INFORMATION
  Report Type: 
  Country: None (occurrence: None)
  Receive Date: 20120315
  Receipt Date: 20120307
  Transmission Date: 20120608
  Serious: Yes (Hospitalization)
  Sender: FDA-Public Use
  Company Number: DE-JNJFOC-20101002413

PATIENT
  Sex: Male
  Weight: 79 kg

DRUGS (15)
  1. ZOMETA [Concomitant]
     Indication: METASTASES TO BONE
     Route: 042
     Dates: start: 20091101
  2. PREDNISOLONE [Suspect]
     Indication: PROSTATE CANCER METASTATIC
     Route: 048
     Dates: start: 20100318
  3. IBUPROFEN TABLETS [Concomitant]
     Indication: CANCER PAIN
     Route: 048
     Dates: start: 20100928
  4. ABIRATERONE ACETATE [Suspect]
     Indication: PROSTATE CANCER METASTATIC
     Route: 048
     Dates: start: 20100318, end: 20101001
  5. FIRMAGON [Concomitant]
     Indication: PROSTATE CANCER
     Route: 058
     Dates: start: 20100318
  6. FIRMAGON [Concomitant]
     Indication: HORMONE THERAPY
     Route: 058
     Dates: start: 20100318
  7. ABIRATERONE ACETATE [Suspect]
     Route: 048
  8. HELIXOR [Concomitant]
     Indication: NEOPLASM PROPHYLAXIS
     Route: 058
     Dates: start: 20090813
  9. FIRMAGON [Concomitant]
     Route: 058
     Dates: start: 20091008
  10. DIPYRONE TAB [Concomitant]
     Indication: ABDOMINAL PAIN
     Route: 048
     Dates: start: 20100920
  11. CALCIUM [Concomitant]
     Indication: METASTASES TO BONE
     Route: 048
     Dates: start: 20100331
  12. BETAMETHASONE 17 VALERATE [Concomitant]
     Indication: STASIS DERMATITIS
     Route: 061
     Dates: start: 20100611
  13. FIRMAGON [Concomitant]
     Route: 058
     Dates: start: 20091008
  14. DIPYRONE TAB [Concomitant]
     Route: 048
     Dates: start: 20100910, end: 20100920
  15. IBUPROFEN TABLETS [Concomitant]
     Route: 048
     Dates: start: 20100925, end: 20100927

REACTIONS (1)
  - HYPOACUSIS [None]
